FAERS Safety Report 8881560 (Version 1)
Quarter: 2012Q4

REPORT INFORMATION
  Report Type: 
  Country: JP (occurrence: JP)
  Receive Date: 20121102
  Receipt Date: 20121102
  Transmission Date: 20130627
  Serious: Yes (Other)
  Sender: FDA-Public Use
  Company Number: JP-ASTELLAS-2012JP010221

PATIENT
  Age: 77 Year

DRUGS (1)
  1. FUNGUARD [Suspect]
     Dosage: 100 mg, 3xWeekly
     Route: 041

REACTIONS (2)
  - Intentional drug misuse [Unknown]
  - Altered state of consciousness [Unknown]
